FAERS Safety Report 9725964 (Version 1)
Quarter: 2013Q4

REPORT INFORMATION
  Report Type: Spontaneous
  Country: CN (occurrence: CN)
  Receive Date: 20131203
  Receipt Date: 20131203
  Transmission Date: 20140711
  Serious: Yes (Hospitalization)
  Sender: FDA-Public Use
  Company Number: CN-ASTRAZENECA-2013SE86237

PATIENT
  Age: 81 Year
  Sex: Male

DRUGS (3)
  1. CRESTOR [Suspect]
     Route: 048
     Dates: start: 2011, end: 201310
  2. CRESTOR [Suspect]
     Route: 048
     Dates: start: 201310
  3. CRESTOR [Suspect]
     Route: 048
     Dates: start: 201310

REACTIONS (3)
  - Coronary artery disease [Unknown]
  - Angina pectoris [Unknown]
  - Blood glucose increased [Unknown]
